FAERS Safety Report 5971706-8 (Version None)
Quarter: 2008Q4

REPORT INFORMATION
  Report Type: 
  Country: None (occurrence: None)
  Receive Date: 20081201
  Receipt Date: 20081120
  Transmission Date: 20090506
  Serious: Yes (Hospitalization)
  Sender: FDA-Public Use
  Company Number: PHHO2008AU13788

PATIENT
  Sex: Male

DRUGS (4)
  1. CYCLOSPORINE [Suspect]
     Dosage: 175 MG, QD
     Route: 048
     Dates: start: 20081117
  2. ZOLEDRONIC ACID [Suspect]
     Indication: STEM CELL TRANSPLANT
     Dosage: 4 MG, UNK
     Route: 042
     Dates: start: 20080919
  3. CALCIUM [Concomitant]
  4. VITAMIN D [Concomitant]

REACTIONS (4)
  - DEHYDRATION [None]
  - HEADACHE [None]
  - NAUSEA [None]
  - VENOUS PRESSURE JUGULAR DECREASED [None]
